FAERS Safety Report 13184639 (Version 2)
Quarter: 2017Q1

REPORT INFORMATION
  Report Type: Report from Study
  Country: FR (occurrence: FR)
  Receive Date: 20170203
  Receipt Date: 20170221
  Transmission Date: 20170428
  Serious: Yes (Death, Hospitalization, Other)
  Sender: FDA-Public Use
  Company Number: FR-PFIZER INC-2016549344

PATIENT
  Age: 66 Year
  Sex: Female
  Weight: 61 kg

DRUGS (3)
  1. PALBOCICLIB [Suspect]
     Active Substance: PALBOCICLIB
     Indication: BREAST CANCER METASTATIC
     Dosage: 125 MG, DAILY
     Route: 048
     Dates: start: 20161017, end: 20161107
  2. FULVESTRANT [Concomitant]
     Active Substance: FULVESTRANT
     Dosage: UNK
     Dates: start: 20161018, end: 20161018
  3. FULVESTRANT [Concomitant]
     Active Substance: FULVESTRANT
     Dosage: UNK
     Dates: start: 20161005, end: 20161005

REACTIONS (17)
  - Ascites [Unknown]
  - Aspartate aminotransferase increased [Unknown]
  - Bilirubin conjugated increased [Unknown]
  - Renal failure [Fatal]
  - Blood alkaline phosphatase increased [Unknown]
  - Gamma-glutamyltransferase increased [Unknown]
  - White blood cell count decreased [Unknown]
  - Eosinophil count decreased [Unknown]
  - Haemoglobin decreased [Unknown]
  - Monocyte count decreased [Unknown]
  - Sepsis [Fatal]
  - Neutropenia [Not Recovered/Not Resolved]
  - Alanine aminotransferase decreased [Unknown]
  - Blood calcium decreased [Unknown]
  - Thrombocytopenia [Not Recovered/Not Resolved]
  - Oedema peripheral [Unknown]
  - Red blood cell count decreased [Unknown]

NARRATIVE: CASE EVENT DATE: 20161024
